FAERS Safety Report 7827508-0 (Version None)
Quarter: 2011Q4

REPORT INFORMATION
  Report Type: 
  Country: None (occurrence: None)
  Receive Date: 20111020
  Receipt Date: 20111012
  Transmission Date: 20120403
  Serious: No
  Sender: FDA-Public Use
  Company Number: PHEH2011US05419

PATIENT
  Sex: Female

DRUGS (3)
  1. TOPAMAX [Concomitant]
     Indication: MIGRAINE
     Dosage: 200 MG, DAILY
     Route: 048
  2. GILENYA [Suspect]
     Indication: RELAPSING-REMITTING MULTIPLE SCLEROSIS
     Dosage: 0.5 MG, DAILY
     Route: 048
     Dates: start: 20110912
  3. RELPAX [Concomitant]
     Indication: MIGRAINE
     Dosage: 40 MG, DAILY
     Route: 048

REACTIONS (3)
  - VISUAL ACUITY REDUCED [None]
  - HEADACHE [None]
  - VISUAL IMPAIRMENT [None]
